FAERS Safety Report 7582921-4 (Version None)
Quarter: 2011Q2

REPORT INFORMATION
  Report Type: 
  Country: None (occurrence: None)
  Receive Date: 20110630
  Receipt Date: 20110623
  Transmission Date: 20111010
  Serious: Yes (Other)
  Sender: FDA-Public Use
  Company Number: CZ-PFIZER INC-2010098341

PATIENT
  Sex: Male

DRUGS (4)
  1. HELICID [Concomitant]
  2. EUTHYROX [Concomitant]
  3. ENOXAPARIN SODIUM [Concomitant]
  4. SUTENT [Suspect]
     Indication: RENAL CELL CARCINOMA
     Dosage: 50 MG, 4 WEEKS ON, 2 WEEKS OFF

REACTIONS (2)
  - PERICARDIAL EFFUSION [None]
  - HYPOKALAEMIA [None]
